FAERS Safety Report 17830981 (Version 1)
Quarter: 2020Q2

REPORT INFORMATION
  Report Type: Report from Study
  Country: US (occurrence: US)
  Receive Date: 20200527
  Receipt Date: 20200527
  Transmission Date: 20200714
  Serious: Yes (Death)
  Sender: FDA-Public Use
  Company Number: US-ACTELION-A-NJ2020-203813

PATIENT
  Age: 60 Year
  Sex: Male
  Weight: 81.63 kg

DRUGS (7)
  1. VENTAVIS [Suspect]
     Active Substance: ILOPROST
     Indication: PULMONARY ARTERIAL HYPERTENSION
     Dosage: UNK
     Route: 055
  2. REMODULIN [Concomitant]
     Active Substance: TREPROSTINIL
  3. ELIQUIS [Concomitant]
     Active Substance: APIXABAN
  4. VENTAVIS [Suspect]
     Active Substance: ILOPROST
     Dosage: 2.5 MCG 6-9X/DAY
     Route: 055
  5. TADALAFIL. [Concomitant]
     Active Substance: TADALAFIL
  6. AMBRISENTAN [Concomitant]
     Active Substance: AMBRISENTAN
  7. VENTAVIS [Suspect]
     Active Substance: ILOPROST
     Dosage: 5 MCG 6-9X/DAY
     Route: 055

REACTIONS (12)
  - Death [Fatal]
  - Glossodynia [Not Recovered/Not Resolved]
  - Throat irritation [Unknown]
  - Oral pain [Not Recovered/Not Resolved]
  - Malaise [Unknown]
  - Quality of life decreased [Unknown]
  - Dysphagia [Unknown]
  - Gingival pain [Unknown]
  - Gait disturbance [Unknown]
  - Stomatitis [Unknown]
  - Oropharyngeal pain [Unknown]
  - Dyspnoea [Unknown]

NARRATIVE: CASE EVENT DATE: 20200513
